FAERS Safety Report 14367487 (Version 1)
Quarter: 2018Q1

REPORT INFORMATION
  Report Type: Spontaneous
  Country: US (occurrence: US)
  Receive Date: 20180108
  Receipt Date: 20180108
  Transmission Date: 20180509
  Serious: Yes (Other)
  Sender: FDA-Public Use
  Company Number: None

PATIENT
  Sex: Male
  Weight: 108 kg

DRUGS (9)
  1. ARIPIPRAZOLE. [Suspect]
     Active Substance: ARIPIPRAZOLE
     Indication: DEPRESSION
     Dosage: ?          QUANTITY:30 TABLET(S);?
     Route: 048
     Dates: start: 20091105, end: 20170422
  2. PRILOSEC [Concomitant]
     Active Substance: OMEPRAZOLE MAGNESIUM
  3. XANAX [Concomitant]
     Active Substance: ALPRAZOLAM
  4. RESTORIL [Concomitant]
     Active Substance: TEMAZEPAM
  5. FISH OIL [Concomitant]
     Active Substance: FISH OIL
  6. PROZAC [Concomitant]
     Active Substance: FLUOXETINE HYDROCHLORIDE
  7. NAPROSYN [Concomitant]
     Active Substance: NAPROXEN
  8. VITAMIN D3 [Concomitant]
     Active Substance: CHOLECALCIFEROL
  9. TYLENOL [Concomitant]
     Active Substance: ACETAMINOPHEN

REACTIONS (6)
  - Family stress [None]
  - Obsessive-compulsive disorder [None]
  - Product prescribing issue [None]
  - Legal problem [None]
  - Loss of employment [None]
  - Compulsive sexual behaviour [None]

NARRATIVE: CASE EVENT DATE: 20091105
